FAERS Safety Report 10236485 (Version 2)
Quarter: 2014Q2

REPORT INFORMATION
  Report Type: Spontaneous
  Country: RU (occurrence: RU)
  Receive Date: 20140613
  Receipt Date: 20140620
  Transmission Date: 20141212
  Serious: Yes (Other)
  Sender: FDA-Public Use
  Company Number: RU-BRISTOL-MYERS SQUIBB COMPANY-20961611

PATIENT
  Age: 75 Year
  Sex: Male
  Weight: 62 kg

DRUGS (6)
  1. ELIQUIS [Suspect]
     Indication: MYOCARDIAL ISCHAEMIA
     Dosage: INTERRUPTED ON 24FEB2014?RESUMED ON:13MAY2014 WITH 2.5MG X 2 PER DAY
     Route: 048
     Dates: start: 20140121
  2. ELIQUIS [Suspect]
     Indication: ATRIAL FIBRILLATION
     Dosage: INTERRUPTED ON 24FEB2014?RESUMED ON:13MAY2014 WITH 2.5MG X 2 PER DAY
     Route: 048
     Dates: start: 20140121
  3. CONCOR [Concomitant]
     Dosage: ONGOING.
  4. DIUVER [Concomitant]
     Dosage: ONGOING.
     Route: 048
  5. VEROSPIRON [Concomitant]
     Dosage: ONGOING.
     Route: 048
  6. PRESTARIUM [Concomitant]
     Indication: HYPOTENSION
     Dosage: ONGOING.
     Route: 048

REACTIONS (4)
  - Haemorrhage urinary tract [Recovered/Resolved]
  - Dysuria [Recovered/Resolved]
  - Cystitis [Recovered/Resolved]
  - Haematuria [Recovered/Resolved]
